FAERS Safety Report 8774153 (Version 2)
Quarter: 2012Q4

REPORT INFORMATION
  Report Type: 
  Country: JP (occurrence: JP)
  Receive Date: 20120907
  Receipt Date: 20120907
  Transmission Date: 20130627
  Serious: Yes (Hospitalization)
  Sender: FDA-Public Use
  Company Number: PHHY2012JP073979

PATIENT
  Age: 76 Year
  Sex: Female

DRUGS (1)
  1. EXELON PATCH [Suspect]
     Indication: SENILE DEMENTIA
     Dosage: 6.75 mg (13.5 mg, half patch daily)
     Route: 062

REACTIONS (2)
  - Pneumonia aspiration [Unknown]
  - Incorrect dose administered [Unknown]
